FAERS Safety Report 5707912-7 (Version None)
Quarter: 2008Q2

REPORT INFORMATION
  Report Type: 
  Country: None (occurrence: None)
  Receive Date: 20080417
  Receipt Date: 20080414
  Transmission Date: 20081010
  Serious: Yes (Hospitalization)
  Sender: FDA-Public Use
  Company Number: JP-BAYER-200711036BYL

PATIENT
  Age: 81 Year
  Sex: Female
  Weight: 52 kg

DRUGS (18)
  1. BAY43-9006 [Suspect]
     Indication: HEPATIC NEOPLASM MALIGNANT
     Dosage: TOTAL DAILY DOSE: 800 MG  UNIT DOSE: 200 MG
     Route: 048
     Dates: start: 20071205, end: 20071211
  2. NORVASC [Concomitant]
     Indication: HYPERTENSION
     Route: 048
     Dates: start: 20071208, end: 20071221
  3. NORVASC [Concomitant]
     Route: 048
  4. AMINOLEBAN EN [Concomitant]
     Indication: HEPATIC CIRRHOSIS
     Route: 048
  5. ASPARA K [Concomitant]
     Indication: HEPATIC CIRRHOSIS
     Route: 048
     Dates: end: 20071211
  6. PANALDINE [Concomitant]
     Indication: CEREBRAL INFARCTION
     Route: 048
     Dates: end: 20071211
  7. GLAKAY [Concomitant]
     Indication: OSTEOPOROSIS
     Route: 048
     Dates: end: 20071221
  8. GASMOTIN [Concomitant]
     Indication: GASTRITIS
     Route: 048
     Dates: end: 20071221
  9. URSO 250 [Concomitant]
     Indication: HEPATIC CIRRHOSIS
     Route: 048
     Dates: end: 20071221
  10. GASTER D [Concomitant]
     Indication: GASTRITIS
     Route: 048
     Dates: end: 20071221
  11. LASIX [Concomitant]
     Indication: HEPATIC CIRRHOSIS
     Route: 048
     Dates: end: 20071211
  12. ALDACTONE [Concomitant]
     Indication: OEDEMA PERIPHERAL
     Route: 048
     Dates: end: 20071211
  13. MONILAC [Concomitant]
     Indication: HYPERAMMONAEMIA
     Route: 048
     Dates: end: 20080117
  14. LAXOBERON [Concomitant]
     Indication: CONSTIPATION
     Route: 048
  15. TATHION [Concomitant]
     Indication: CATARACT
     Route: 047
  16. MS REISHIPPU [Concomitant]
     Indication: BACK PAIN
     Route: 062
  17. MS ONSHIPPU [Concomitant]
     Indication: BACK PAIN
     Route: 062
  18. GLYSENNID [Concomitant]
     Indication: CONSTIPATION
     Route: 048
     Dates: end: 20071226

REACTIONS (2)
  - DEEP VEIN THROMBOSIS [None]
  - HEPATIC ENCEPHALOPATHY [None]
